FAERS Safety Report 20136742 (Version 2)
Quarter: 2023Q2

REPORT INFORMATION
  Report Type: Report from Study
  Country: EG (occurrence: EG)
  Receive Date: 20211201
  Receipt Date: 20230408
  Transmission Date: 20230722
  Serious: Yes (Other)
  Sender: FDA-Public Use
  Company Number: EG-NOVARTISPH-NVSC2021EG270708

PATIENT
  Sex: Female

DRUGS (10)
  1. GLIVEC [Suspect]
     Active Substance: IMATINIB MESYLATE
     Indication: Chronic myeloid leukaemia
     Dosage: 4 DOSAGE FORM, QD
     Route: 048
     Dates: start: 2019, end: 202109
  2. TASIGNA [Suspect]
     Active Substance: NILOTINIB
     Indication: Chronic myeloid leukaemia
     Dosage: 4 DOSAGE FORM, QD
     Route: 048
     Dates: start: 202109
  3. OLFEN [Concomitant]
     Indication: Neuropathy peripheral
     Dosage: 2 DOSAGE FORM, QD (STRENGTH 100) (SINCE 2010 OR 2012)
     Route: 065
  4. OLFEN [Concomitant]
     Indication: Analgesic therapy
  5. GAPTIN [Concomitant]
     Indication: Neuropathy peripheral
     Dosage: 2 DOSAGE FORM, QD (STRENGTH 400) (SINCE 2010 OR 2012)
     Route: 065
  6. GAPTIN [Concomitant]
     Indication: Analgesic therapy
  7. LYRICA [Concomitant]
     Active Substance: PREGABALIN
     Indication: Neuropathy peripheral
     Dosage: 2 DOSAGE FORM, QD (STRENGTH 100) (SINCE 2010 OR 2012)
     Route: 065
  8. LYRICA [Concomitant]
     Active Substance: PREGABALIN
     Indication: Analgesic therapy
  9. LYROLIN [Concomitant]
     Indication: Neuropathy peripheral
     Dosage: 2 DOSAGE FORM, QD (STRENGTH 150) (SINCE Y 2010 OR 2012)
     Route: 065
  10. LYROLIN [Concomitant]
     Indication: Analgesic therapy

REACTIONS (2)
  - Blindness [Not Recovered/Not Resolved]
  - Polymerase chain reaction [Not Recovered/Not Resolved]

NARRATIVE: CASE EVENT DATE: 20190101
